FAERS Safety Report 8554534-9 (Version None)
Quarter: 2012Q3

REPORT INFORMATION
  Report Type: 
  Country: None (occurrence: None)
  Receive Date: 20120731
  Receipt Date: 20120723
  Transmission Date: 20120928
  Serious: Yes (Other)
  Sender: FDA-Public Use
  Company Number: CH-ELI_LILLY_AND_COMPANY-CH201207006717

PATIENT
  Sex: Female
  Weight: 63 kg

DRUGS (3)
  1. COLECALCIFEROL [Concomitant]
     Indication: OSTEOPOROSIS
     Dosage: 10 DF, QD
     Route: 048
  2. CALCIMAGON D3 [Concomitant]
     Indication: OSTEOPOROSIS
     Dosage: 1 DF, QD
     Route: 048
  3. FORTEO [Suspect]
     Indication: OSTEOPOROSIS
     Dosage: 20 UG, QD
     Route: 058
     Dates: start: 20120701

REACTIONS (3)
  - NAUSEA [None]
  - CYANOSIS [None]
  - TONGUE DISCOLOURATION [None]
